FAERS Safety Report 20691957 (Version 1)
Quarter: 2022Q2

REPORT INFORMATION
  Report Type: Other
  Country: US (occurrence: None)
  Receive Date: 20220408
  Receipt Date: 20220408
  Transmission Date: 20220721
  Serious: Yes (Other)
  Sender: FDA-Public Use
  Company Number: US-ROCHE-3063650

PATIENT
  Age: 2 Year
  Sex: Male

DRUGS (14)
  1. TOCILIZUMAB [Suspect]
     Active Substance: TOCILIZUMAB
     Indication: Still^s disease
     Dosage: 12 MG/KG/DOSE
     Route: 042
  2. CLARITHROMYCIN [Concomitant]
     Active Substance: CLARITHROMYCIN
  3. AMPICILLIN [Concomitant]
     Active Substance: AMPICILLIN
  4. AMOXICILLIN [Concomitant]
     Active Substance: AMOXICILLIN
  5. CLINDAMYCIN [Concomitant]
     Active Substance: CLINDAMYCIN
  6. ANAKINRA [Concomitant]
     Active Substance: ANAKINRA
     Dosage: MAXIMUM DOSE 5 MG/KG/DOSE SUBCUTANEOUS TWICE DAILY
     Route: 058
  7. METHYLPREDNISOLONE [Concomitant]
     Active Substance: METHYLPREDNISOLONE
     Dosage: FOR 3 DAYS
     Route: 042
  8. PREDNISOLONE [Concomitant]
     Active Substance: PREDNISOLONE
     Dosage: TAPER DOWN
  9. ACETAMINOPHEN [Concomitant]
     Active Substance: ACETAMINOPHEN
  10. DIPHENHYDRAMINE [Concomitant]
     Active Substance: DIPHENHYDRAMINE
  11. CYCLOSPORINE [Concomitant]
     Active Substance: CYCLOSPORINE
     Dosage: ENTERAL 4 MG/KG/DOSE
  12. CANAKINUMAB [Concomitant]
     Active Substance: CANAKINUMAB
     Dosage: 4 MG/KG/DOSE
  13. TOFACITINIB [Concomitant]
     Active Substance: TOFACITINIB
  14. SULFAMETHOXAZOLE\TRIMETHOPRIM [Concomitant]
     Active Substance: SULFAMETHOXAZOLE\TRIMETHOPRIM

REACTIONS (6)
  - Anaphylactoid reaction [Unknown]
  - Respiratory distress [Unknown]
  - Cyanosis [Unknown]
  - Leukocytosis [Unknown]
  - Thrombocytosis [Unknown]
  - Inflammatory marker increased [Unknown]
